FAERS Safety Report 8768126 (Version 1)
Quarter: 2012Q4

REPORT INFORMATION
  Report Type: 
  Country: CA (occurrence: CA)
  Receive Date: 20120831
  Receipt Date: 20120831
  Transmission Date: 20130627
  Serious: Yes (Hospitalization)
  Sender: FDA-Public Use
  Company Number: CA-ELI_LILLY_AND_COMPANY-CA201208008120

PATIENT
  Age: 70 Year
  Sex: Female

DRUGS (26)
  1. FORTEO [Suspect]
     Indication: OSTEOPOROSIS
     Dosage: 20 ug, qd
     Route: 058
     Dates: start: 20110702, end: 20120821
  2. DIOVAN [Concomitant]
     Dosage: UNK, unknown
     Route: 065
  3. DOMPERIDONE [Concomitant]
     Dosage: UNK, unknown
     Route: 065
  4. FOLIC ACID [Concomitant]
     Dosage: UNK, unknown
     Route: 065
  5. LASIX [Concomitant]
     Dosage: UNK, unknown
     Route: 065
  6. LASIX [Concomitant]
     Dosage: UNK, unknown
     Route: 065
  7. NEXIUM [Concomitant]
     Dosage: UNK, unknown
     Route: 065
  8. PLAQUENIL [Concomitant]
     Dosage: UNK, unknown
     Route: 065
  9. PREDNISONE [Concomitant]
     Dosage: UNK, unknown
     Route: 065
  10. CODEINE CONTIN [Concomitant]
     Dosage: UNK, unknown
     Route: 065
  11. SINGULAIR [Concomitant]
     Dosage: UNK, unknown
     Route: 065
  12. ADVAIR DISKUS [Concomitant]
     Dosage: UNK, unknown
     Route: 065
  13. FLONASE [Concomitant]
     Dosage: UNK, unknown
     Route: 065
  14. SALVENT [Concomitant]
     Dosage: UNK, unknown
     Route: 065
  15. HUMALOG [Concomitant]
     Dosage: UNK, unknown
     Route: 065
  16. LANTUS [Concomitant]
     Dosage: UNK, unknown
     Route: 065
  17. BABY ASPIRIN [Concomitant]
     Dosage: UNK, unknown
     Route: 065
  18. SENOKOT [Concomitant]
     Dosage: UNK, unknown
     Route: 065
  19. SOFLAX [Concomitant]
     Dosage: UNK, unknown
     Route: 065
  20. LACTULOSE [Concomitant]
     Dosage: UNK, unknown
     Route: 065
  21. NYSTATIN [Concomitant]
     Indication: RASH
     Dosage: UNK, unknown
     Route: 065
  22. VITAMIN D [Concomitant]
     Dosage: UNK, unknown
     Route: 065
  23. CALCIUM CARBONATE [Concomitant]
     Dosage: UNK, unknown
     Route: 065
  24. VITAMIN B [Concomitant]
     Dosage: UNK, unknown
     Route: 065
  25. FISH OIL [Concomitant]
     Dosage: UNK, unknown
     Route: 065
  26. PROBIOTICS [Concomitant]
     Dosage: UNK, unknown
     Route: 065

REACTIONS (2)
  - Cardiac failure congestive [Unknown]
  - Pneumonia [Unknown]
